FAERS Safety Report 25024684 (Version 1)
Quarter: 2025Q1

REPORT INFORMATION
  Report Type: Spontaneous
  Country: FR (occurrence: FR)
  Receive Date: 20250228
  Receipt Date: 20250228
  Transmission Date: 20250409
  Serious: Yes (Death)
  Sender: JOHNSON AND JOHNSON
  Company Number: FR-JNJFOC-20250261175

PATIENT
  Sex: Male

DRUGS (2)
  1. REMICADE [Suspect]
     Active Substance: INFLIXIMAB
     Indication: Myocarditis
     Route: 041
  2. METHYLPREDNISOLONE [Suspect]
     Active Substance: METHYLPREDNISOLONE
     Indication: Myocarditis

REACTIONS (4)
  - Intestinal ischaemia [Fatal]
  - Peritonitis [Fatal]
  - Haemorrhage [Fatal]
  - Off label use [Unknown]
